FAERS Safety Report 8781774 (Version 3)
Quarter: 2012Q4

REPORT INFORMATION
  Report Type: 
  Country: US (occurrence: US)
  Receive Date: 20120913
  Receipt Date: 20121022
  Transmission Date: 20130627
  Serious: No
  Sender: FDA-Public Use
  Company Number: US-PFIZER INC-2012223148

PATIENT
  Age: 73 Year
  Sex: Female

DRUGS (2)
  1. TOVIAZ [Suspect]
     Indication: HYPERTONIC BLADDER
     Dosage: 4 mg, UNK
     Route: 048
     Dates: start: 20120903, end: 20120910
  2. TOVIAZ [Suspect]
     Indication: URGE INCONTINENCE

REACTIONS (3)
  - Expired drug administered [Unknown]
  - Malaise [Unknown]
  - Dizziness [Recovered/Resolved]
